FAERS Safety Report 8025299-4 (Version None)
Quarter: 2012Q1

REPORT INFORMATION
  Report Type: 
  Country: None (occurrence: None)
  Receive Date: 20120105
  Receipt Date: 20111228
  Transmission Date: 20120608
  Serious: Yes (Hospitalization)
  Sender: FDA-Public Use
  Company Number: JP-ROCHE-718751

PATIENT
  Sex: Female
  Weight: 107 kg

DRUGS (22)
  1. ACTEMRA [Suspect]
     Indication: RHEUMATOID ARTHRITIS
     Route: 041
     Dates: start: 20090430, end: 20090430
  2. ACTEMRA [Suspect]
     Route: 041
     Dates: start: 20090625, end: 20090625
  3. ACTEMRA [Suspect]
     Route: 041
     Dates: start: 20090910, end: 20090910
  4. SELBEX [Concomitant]
     Dosage: FORM: MINUTE GRAIN
     Route: 048
  5. MAGNESIUM OXIDE [Concomitant]
     Dosage: FORM: PERORAL AGENT
     Route: 048
  6. ACTEMRA [Suspect]
     Route: 041
     Dates: start: 20090723, end: 20090723
  7. ACTEMRA [Suspect]
     Route: 041
     Dates: start: 20091008, end: 20091008
  8. ACTEMRA [Suspect]
     Route: 041
  9. PREDNISOLONE [Suspect]
     Route: 048
  10. KETOPROFEN [Concomitant]
     Dosage: FORM: TAPE
     Route: 061
  11. PREDNISOLONE [Suspect]
     Route: 048
     Dates: start: 20091019, end: 20091021
  12. STICKZENOL A [Concomitant]
     Route: 061
  13. EPATEC [Concomitant]
     Dosage: PROPER QUANTITY
     Route: 048
  14. ACTEMRA [Suspect]
     Route: 041
  15. FAMOTIDINE [Concomitant]
     Route: 048
  16. SENNOSIDE [Concomitant]
     Route: 048
  17. ACTEMRA [Suspect]
     Route: 041
  18. PREDNISOLONE [Suspect]
     Indication: RHEUMATOID ARTHRITIS
     Route: 048
  19. PROGRAF [Concomitant]
     Route: 048
  20. ACTEMRA [Suspect]
     Route: 041
  21. PROGRAF [Concomitant]
     Route: 048
  22. ACTEMRA [Suspect]
     Route: 041
     Dates: start: 20090528, end: 20090528

REACTIONS (6)
  - CELLULITIS [None]
  - POLLAKIURIA [None]
  - DERMAL CYST [None]
  - PRURITUS [None]
  - ASTHMA [None]
  - HYPERCHOLESTEROLAEMIA [None]
